FAERS Safety Report 10082587 (Version 1)
Quarter: 2014Q2

REPORT INFORMATION
  Report Type: Spontaneous
  Country: ES (occurrence: ES)
  Receive Date: 20140416
  Receipt Date: 20140416
  Transmission Date: 20141212
  Serious: Yes (Hospitalization)
  Sender: FDA-Public Use
  Company Number: PHHY2014ES044078

PATIENT
  Age: 68 Year
  Sex: Male

DRUGS (2)
  1. METHOTREXATE [Suspect]
     Dosage: 25 MG, WEEKLY
     Dates: start: 2008
  2. FOLATE [Suspect]
     Dosage: 10 MG, WEEKLY

REACTIONS (13)
  - Cardiac failure [Unknown]
  - Atrial fibrillation [Unknown]
  - Arrhythmia [Unknown]
  - Leukoencephalopathy [Recovered/Resolved]
  - Dysarthria [Recovered/Resolved]
  - Gait disturbance [Recovered/Resolved]
  - Coordination abnormal [Recovered/Resolved]
  - Ataxia [Recovered/Resolved]
  - Tremor [Recovered/Resolved]
  - Dyspnoea [Recovered/Resolved]
  - Disturbance in attention [Recovered/Resolved]
  - Pleural effusion [Recovered/Resolved]
  - Left ventricular dysfunction [Unknown]
